FAERS Safety Report 7814216-5 (Version None)
Quarter: 2011Q4

REPORT INFORMATION
  Report Type: 
  Country: None (occurrence: None)
  Receive Date: 20111014
  Receipt Date: 20111010
  Transmission Date: 20120403
  Serious: Yes (Other)
  Sender: FDA-Public Use
  Company Number: FR-BRISTOL-MYERS SQUIBB COMPANY-16062168

PATIENT
  Age: 44 Year
  Sex: Female
  Weight: 80 kg

DRUGS (6)
  1. ZITHROMAX [Concomitant]
     Indication: DEPRESSION
     Dosage: STARTED BEFORE 2009
     Route: 048
  2. ORENCIA [Suspect]
     Indication: RHEUMATOID ARTHRITIS
     Dosage: FOR AROUND 1 YEAR,FEW TIME AGO
     Route: 042
     Dates: start: 20100908, end: 20110606
  3. METHOTREXATE SODIUM [Concomitant]
     Indication: RHEUMATOID ARTHRITIS
     Dates: start: 20090101
  4. PREDNISONE [Suspect]
     Indication: RHEUMATOID ARTHRITIS
     Route: 048
     Dates: start: 20090101
  5. OROCAL [Concomitant]
     Indication: OSTEOPOROSIS
     Route: 048
  6. EFFEXOR [Concomitant]
     Indication: DEPRESSION
     Dosage: STARTED BEFORE 2009
     Route: 048

REACTIONS (1)
  - WEIGHT INCREASED [None]
